FAERS Safety Report 23566038 (Version 1)
Quarter: 2024Q1

REPORT INFORMATION
  Report Type: Spontaneous
  Country: US (occurrence: None)
  Receive Date: 20240225
  Receipt Date: 20240225
  Transmission Date: 20240410
  Serious: Yes (Other)
  Sender: FDA-Public Use
  Company Number: None

PATIENT
  Age: 46 Year
  Sex: Male
  Weight: 74.25 kg

DRUGS (5)
  1. VRAYLAR [Suspect]
     Active Substance: CARIPRAZINE
     Indication: Depression
     Dosage: FREQUENCY : AT BEDTIME;?
     Route: 048
     Dates: start: 20240209
  2. LORATADINE [Concomitant]
     Active Substance: LORATADINE
  3. NEFAZODONE [Concomitant]
     Active Substance: NEFAZODONE
  4. METHYLPHENIDATE [Concomitant]
     Active Substance: METHYLPHENIDATE
  5. DEVICE [Concomitant]
     Active Substance: DEVICE

REACTIONS (5)
  - Fall [None]
  - Skin laceration [None]
  - Loss of consciousness [None]
  - Sleep disorder [None]
  - Disturbance in attention [None]

NARRATIVE: CASE EVENT DATE: 20240217
